FAERS Safety Report 14272112 (Version 2)
Quarter: 2018Q1

REPORT INFORMATION
  Report Type: Spontaneous
  Country: US (occurrence: US)
  Receive Date: 20171211
  Receipt Date: 20180212
  Transmission Date: 20180508
  Serious: No
  Sender: FDA-Public Use
  Company Number: US-ACTELION-A-NJ2017-161265

PATIENT
  Age: 50 Year
  Sex: Female
  Weight: 64.85 kg

DRUGS (3)
  1. LETAIRIS [Concomitant]
     Active Substance: AMBRISENTAN
  2. VELETRI [Suspect]
     Active Substance: EPOPROSTENOL
     Indication: PULMONARY ARTERIAL HYPERTENSION
     Dosage: 7 NG/KG, PER MIN
     Route: 042
  3. SILDENAFIL. [Concomitant]
     Active Substance: SILDENAFIL

REACTIONS (24)
  - Influenza like illness [Unknown]
  - Application site irritation [Unknown]
  - Nasal congestion [Not Recovered/Not Resolved]
  - Joint swelling [Unknown]
  - Malaise [Recovered/Resolved]
  - Fear [Recovered/Resolved]
  - Amnesia [Unknown]
  - Dyspnoea [Unknown]
  - Syncope [Recovered/Resolved]
  - Crying [Recovered/Resolved]
  - Application site pruritus [Unknown]
  - Nausea [Unknown]
  - Pain in extremity [Unknown]
  - Chest pain [Recovered/Resolved]
  - Palpitations [Recovered/Resolved]
  - Diarrhoea [Unknown]
  - Decreased appetite [Recovering/Resolving]
  - Pain in jaw [Unknown]
  - Burning sensation [Recovered/Resolved]
  - Application site vesicles [Unknown]
  - Vomiting [Recovering/Resolving]
  - Flushing [Unknown]
  - Headache [Unknown]
  - Product storage error [Unknown]

NARRATIVE: CASE EVENT DATE: 20180129
